FAERS Safety Report 16872441 (Version 1)
Quarter: 2019Q4

REPORT INFORMATION
  Report Type: Spontaneous
  Country: US (occurrence: US)
  Receive Date: 20191001
  Receipt Date: 20191001
  Transmission Date: 20200122
  Serious: Yes (Hospitalization, Other)
  Sender: FDA-Public Use
  Company Number: US-MICRO LABS LIMITED-ML2019-02532

PATIENT
  Age: 67 Year
  Sex: Male

DRUGS (7)
  1. SEVOFLURANE. [Suspect]
     Active Substance: SEVOFLURANE
     Indication: GENERAL ANAESTHESIA
  2. CISATRACURIUM. [Suspect]
     Active Substance: CISATRACURIUM
     Indication: GENERAL ANAESTHESIA
  3. PROTAMINE SULFATE. [Suspect]
     Active Substance: PROTAMINE SULFATE
  4. METOPROLOL SUCCINATE. [Suspect]
     Active Substance: METOPROLOL SUCCINATE
     Indication: HYPERTENSION
     Dosage: 50 MG DAILY
  5. PROPOFOL. [Suspect]
     Active Substance: PROPOFOL
     Indication: GENERAL ANAESTHESIA
  6. ISOPHANE INSULIN [Suspect]
     Active Substance: INSULIN NOS
  7. LOSARTAN. [Suspect]
     Active Substance: LOSARTAN
     Indication: HYPERTENSION
     Dosage: 25 MG DAILY

REACTIONS (2)
  - Drug interaction [Unknown]
  - Vasoplegia syndrome [Recovered/Resolved]
